FAERS Safety Report 11889291 (Version 1)
Quarter: 2016Q1

REPORT INFORMATION
  Report Type: Spontaneous
  Country: US (occurrence: None)
  Receive Date: 20160104
  Receipt Date: 20160104
  Transmission Date: 20160526
  Serious: Yes (Hospitalization)
  Sender: FDA-Public Use
  Company Number: None

PATIENT
  Age: 77 Year
  Sex: Male
  Weight: 119 kg

DRUGS (1)
  1. ELIQUIS [Suspect]
     Active Substance: APIXABAN
     Indication: ATRIAL FIBRILLATION
     Route: 048

REACTIONS (7)
  - Nausea [None]
  - Gastrointestinal haemorrhage [None]
  - Cardiac disorder [None]
  - Dizziness [None]
  - Pneumonia [None]
  - Sudden death [None]
  - Duodenal ulcer [None]

NARRATIVE: CASE EVENT DATE: 20151117
